FAERS Safety Report 9500003 (Version 1)
Quarter: 2013Q1

REPORT INFORMATION
  Report Type: Spontaneous
  Country: US (occurrence: None)
  Receive Date: 20130107
  Receipt Date: 20130107
  Transmission Date: 20140127
  Serious: Yes (Other)
  Sender: FDA-Public Use
  Company Number: PHEH2012US023143

PATIENT
  Sex: Female
  Weight: 90.7 kg

DRUGS (1)
  1. GILENYA [Suspect]
     Indication: MULTIPLE SCLEROSIS

REACTIONS (7)
  - Multiple sclerosis relapse [None]
  - Pain [None]
  - Sensation of pressure [None]
  - Asthenia [None]
  - Bone pain [None]
  - Pain of skin [None]
  - Asthenia [None]
